FAERS Safety Report 5279827-2 (Version None)
Quarter: 2007Q1

REPORT INFORMATION
  Report Type: 
  Country: None (occurrence: None)
  Receive Date: 20061218
  Receipt Date: 20061018
  Transmission Date: 20070707
  Serious: Yes (Other)
  Sender: FDA-Public Use
  Company Number: US200609005728

PATIENT
  Age: 47 Year
  Sex: Male

DRUGS (1)
  1. HUMULIN R [Suspect]
     Indication: DIABETES MELLITUS
     Dosage: SUB. PUMP
     Dates: start: 20060822

REACTIONS (1)
  - BLOOD GLUCOSE INCREASED [None]
